FAERS Safety Report 10706000 (Version 12)
Quarter: 2016Q3

REPORT INFORMATION
  Report Type: Report from Study
  Country: US (occurrence: US)
  Receive Date: 20150113
  Receipt Date: 20160809
  Transmission Date: 20161109
  Serious: Yes (Hospitalization, Other)
  Sender: FDA-Public Use
  Company Number: US-AMGEN-USASP2015002006

PATIENT
  Age: 70 Year
  Sex: Male

DRUGS (7)
  1. ENBREL [Suspect]
     Active Substance: ETANERCEPT
     Indication: PSORIATIC ARTHROPATHY
     Dosage: 50 MG, 2 TIMES/WK
     Route: 065
     Dates: end: 20150115
  2. NAPROXEN. [Concomitant]
     Active Substance: NAPROXEN
     Dosage: UNK
     Route: 048
  3. HUMIRA [Concomitant]
     Active Substance: ADALIMUMAB
     Indication: PSORIASIS
     Dosage: UNK
  4. ENBREL [Suspect]
     Active Substance: ETANERCEPT
     Indication: PSORIASIS
     Dosage: 50 MG, QWK
     Route: 065
  5. NORTRIPTYLINE [Concomitant]
     Active Substance: NORTRIPTYLINE
     Dosage: UNK
     Route: 048
  6. PANTOPRAZOLE [Concomitant]
     Active Substance: PANTOPRAZOLE SODIUM
     Dosage: UNK
     Route: 048
  7. LIPITOR [Concomitant]
     Active Substance: ATORVASTATIN CALCIUM
     Dosage: UNK
     Route: 048

REACTIONS (35)
  - Anal incontinence [Not Recovered/Not Resolved]
  - Gastric disorder [Recovered/Resolved]
  - Feeling abnormal [Unknown]
  - Prostate cancer [Unknown]
  - Nervous system disorder [Not Recovered/Not Resolved]
  - Metastasis [Unknown]
  - Confusional state [Not Recovered/Not Resolved]
  - Urinary incontinence [Not Recovered/Not Resolved]
  - Abasia [Not Recovered/Not Resolved]
  - Fall [Recovered/Resolved]
  - Urticaria [Unknown]
  - Drug hypersensitivity [Unknown]
  - Metastases to central nervous system [Unknown]
  - Psoriasis [Unknown]
  - Muscle spasms [Unknown]
  - Diarrhoea [Recovered/Resolved]
  - Neoplasm malignant [Unknown]
  - Ankle fracture [Recovered/Resolved]
  - Prostatectomy [Recovered/Resolved]
  - Pneumonia [Recovered/Resolved]
  - Pain [Unknown]
  - Wheelchair user [Unknown]
  - Memory impairment [Unknown]
  - Insomnia [Unknown]
  - Foot fracture [Recovered/Resolved]
  - Chest injury [Recovered/Resolved]
  - Musculoskeletal disorder [Not Recovered/Not Resolved]
  - Intestinal haemorrhage [Recovered/Resolved]
  - Loss of consciousness [Recovered/Resolved]
  - Brain neoplasm [Unknown]
  - Hospitalisation [Recovered/Resolved]
  - Speech disorder [Not Recovered/Not Resolved]
  - Hypoacusis [Not Recovered/Not Resolved]
  - Faeces discoloured [Not Recovered/Not Resolved]
  - Condition aggravated [Unknown]

NARRATIVE: CASE EVENT DATE: 2005
